FAERS Safety Report 7391400-9 (Version None)
Quarter: 2011Q1

REPORT INFORMATION
  Report Type: 
  Country: None (occurrence: None)
  Receive Date: 20110324
  Receipt Date: 20110308
  Transmission Date: 20110831
  Serious: Yes (Hospitalization)
  Sender: FDA-Public Use
  Company Number: FK201100432

PATIENT
  Age: 56 Year
  Sex: Female

DRUGS (2)
  1. LEUCOVORIN CALCIUM (LEUCOVORIN FOLINATE) (LEUCOVORIN FOLINATE) [Concomitant]
  2. FLUOROURACIL INJ [Suspect]
     Indication: COLON CANCER METASTATIC

REACTIONS (6)
  - WOUND SECRETION [None]
  - LOSS OF CONSCIOUSNESS [None]
  - WERNICKE'S ENCEPHALOPATHY [None]
  - ATAXIA [None]
  - EPILEPSY [None]
  - OPHTHALMOPLEGIA [None]
